FAERS Safety Report 10136665 (Version 1)
Quarter: 2014Q2

REPORT INFORMATION
  Report Type: Spontaneous
  Country: US (occurrence: US)
  Receive Date: 20140429
  Receipt Date: 20140429
  Transmission Date: 20141212
  Serious: Yes (Other)
  Sender: FDA-Public Use
  Company Number: US-AMGEN-USASP2014029287

PATIENT
  Age: 63 Year
  Sex: Female

DRUGS (1)
  1. PROLIA [Suspect]
     Indication: OSTEOPOROSIS POSTMENOPAUSAL
     Dosage: UNK
     Route: 065
     Dates: start: 20140325

REACTIONS (17)
  - Impaired work ability [Unknown]
  - Infection [Recovering/Resolving]
  - Chills [Unknown]
  - Pain [Unknown]
  - Peripheral swelling [Unknown]
  - Muscle spasms [Unknown]
  - Cough [Recovering/Resolving]
  - Oropharyngeal pain [Recovering/Resolving]
  - Tonsillar inflammation [Recovering/Resolving]
  - Lymphadenitis [Recovering/Resolving]
  - Malaise [Recovering/Resolving]
  - Abdominal pain upper [Unknown]
  - Fatigue [Recovering/Resolving]
  - Asthenia [Recovering/Resolving]
  - Arthralgia [Unknown]
  - Musculoskeletal pain [Unknown]
  - Pain in extremity [Unknown]
